FAERS Safety Report 13273379 (Version 3)
Quarter: 2017Q1

REPORT INFORMATION
  Report Type: Spontaneous
  Country: JP (occurrence: JP)
  Receive Date: 20170227
  Receipt Date: 20170313
  Transmission Date: 20170428
  Serious: Yes (Death, Other)
  Sender: FDA-Public Use
  Company Number: JP-CELGENEUS-JPN-2017025480

PATIENT
  Age: 55 Year
  Sex: Male

DRUGS (10)
  1. REVLIMID [Suspect]
     Active Substance: LENALIDOMIDE
     Indication: PRIMARY AMYLOIDOSIS
     Dosage: 10 MILLIGRAM
     Route: 048
     Dates: start: 20151105, end: 20160704
  2. ENDOXAN [Suspect]
     Active Substance: CYCLOPHOSPHAMIDE
     Route: 048
     Dates: start: 20161007, end: 20161024
  3. LENADEX [Suspect]
     Active Substance: DEXAMETHASONE ACETATE
     Dosage: 20 MILLIGRAM
     Route: 048
     Dates: start: 201607, end: 20161018
  4. LENADEX [Suspect]
     Active Substance: DEXAMETHASONE ACETATE
     Route: 065
     Dates: start: 20161007, end: 20161024
  5. REVLIMID [Suspect]
     Active Substance: LENALIDOMIDE
     Dosage: 10 MILLIGRAM
     Route: 048
     Dates: start: 201607, end: 20161018
  6. ENDOXAN [Suspect]
     Active Substance: CYCLOPHOSPHAMIDE
     Indication: PRIMARY AMYLOIDOSIS
     Route: 048
     Dates: start: 20151105, end: 20160704
  7. LENADEX [Suspect]
     Active Substance: DEXAMETHASONE ACETATE
     Dosage: 20 MILLIGRAM
     Route: 048
     Dates: start: 20151105, end: 20160704
  8. REVLIMID [Suspect]
     Active Substance: LENALIDOMIDE
     Route: 048
     Dates: start: 20161007, end: 20161024
  9. LENADEX [Suspect]
     Active Substance: DEXAMETHASONE ACETATE
     Indication: PRIMARY AMYLOIDOSIS
     Route: 065
  10. BORTEZOMIB [Suspect]
     Active Substance: BORTEZOMIB
     Indication: PRIMARY AMYLOIDOSIS
     Route: 065

REACTIONS (8)
  - Plasmacytoma [Unknown]
  - Therapeutic response decreased [Unknown]
  - Subileus [Unknown]
  - White blood cell count decreased [Unknown]
  - Primary amyloidosis [Fatal]
  - Renal impairment [Unknown]
  - Postrenal failure [Unknown]
  - Eastern Cooperative Oncology Group performance status worsened [Unknown]

NARRATIVE: CASE EVENT DATE: 2016
